FAERS Safety Report 10047778 (Version 6)
Quarter: 2014Q4

REPORT INFORMATION
  Report Type: Spontaneous
  Country: US (occurrence: US)
  Receive Date: 20140331
  Receipt Date: 20141113
  Transmission Date: 20150528
  Serious: Yes (Other)
  Sender: FDA-Public Use
  Company Number: US-MERCK-1403USA013497

PATIENT
  Sex: Male
  Weight: 99.77 kg

DRUGS (1)
  1. JANUVIA [Suspect]
     Active Substance: SITAGLIPTIN PHOSPHATE
     Indication: TYPE 2 DIABETES MELLITUS
     Dosage: 100 MG, QD
     Route: 048
     Dates: start: 20111013, end: 20140421

REACTIONS (24)
  - Pancreatic carcinoma [Not Recovered/Not Resolved]
  - Vitamin B12 decreased [Unknown]
  - Spinal osteoarthritis [Unknown]
  - Thrombocytopenia [Not Recovered/Not Resolved]
  - Metastases to lymph nodes [Unknown]
  - Ascites [Unknown]
  - Peritoneal carcinoma metastatic [Unknown]
  - Skin papilloma [Unknown]
  - Thyroid neoplasm [Unknown]
  - Adrenal disorder [Unknown]
  - Goitre [Unknown]
  - Renal cyst [Unknown]
  - Anaemia [Not Recovered/Not Resolved]
  - Lymphadenopathy [Unknown]
  - Metastases to liver [Not Recovered/Not Resolved]
  - Diverticulitis [Unknown]
  - Pulmonary mass [Unknown]
  - Hepatic lesion [Unknown]
  - Protein urine present [Unknown]
  - Cholelithiasis [Unknown]
  - Cardiomegaly [Unknown]
  - Vascular calcification [Unknown]
  - Lung infiltration [Unknown]
  - Intestinal stenosis [Unknown]

NARRATIVE: CASE EVENT DATE: 20121222
